FAERS Safety Report 19434102 (Version 2)
Quarter: 2021Q2

REPORT INFORMATION
  Report Type: Spontaneous
  Country: CH (occurrence: CH)
  Receive Date: 20210617
  Receipt Date: 20210629
  Transmission Date: 20210717
  Serious: Yes (Death, Other)
  Sender: FDA-Public Use
  Company Number: CH-BIOGEN-2021BI01020451

PATIENT
  Age: 0 Year
  Sex: Female
  Weight: 1.82 kg

DRUGS (2)
  1. TECFIDERA [Suspect]
     Active Substance: DIMETHYL FUMARATE
     Indication: MATERNAL EXPOSURE TIMING UNSPECIFIED
     Route: 064
     Dates: start: 201603, end: 201809
  2. TECFIDERA [Suspect]
     Active Substance: DIMETHYL FUMARATE
     Route: 064
     Dates: end: 202010

REACTIONS (7)
  - Congenital central nervous system anomaly [Unknown]
  - Foetal exposure during pregnancy [Recovered/Resolved]
  - Premature baby [Unknown]
  - Neonatal asphyxia [Fatal]
  - Low birth weight baby [Unknown]
  - Acidosis [Fatal]
  - Ventricular septal defect [Unknown]

NARRATIVE: CASE EVENT DATE: 20201218
